FAERS Safety Report 5289279-4 (Version None)
Quarter: 2007Q2

REPORT INFORMATION
  Report Type: 
  Country: None (occurrence: None)
  Receive Date: 20070404
  Receipt Date: 20070404
  Transmission Date: 20071010
  Serious: Yes (Death)
  Sender: FDA-Public Use
  Company Number: None

PATIENT
  Sex: Female
  Weight: 44.2 kg

DRUGS (1)
  1. CYTARABINE [Suspect]
     Dosage: 910 MG
     Dates: end: 20041117

REACTIONS (1)
  - DEATH [None]
